FAERS Safety Report 6810926-7 (Version None)
Quarter: 2010Q2

REPORT INFORMATION
  Report Type: 
  Country: None (occurrence: None)
  Receive Date: 20100630
  Receipt Date: 20080924
  Transmission Date: 20101027
  Serious: No
  Sender: FDA-Public Use
  Company Number: US-PFIZER INC-2008081276

PATIENT
  Sex: Female
  Weight: 48.636 kg

DRUGS (6)
  1. ESTRING [Suspect]
     Indication: VULVOVAGINAL DRYNESS
     Dates: start: 20080923
  2. ESTRING [Suspect]
     Indication: BLADDER PROLAPSE
  3. LIPITOR [Concomitant]
     Indication: BLOOD CHOLESTEROL INCREASED
     Dates: start: 20060101
  4. MAXZIDE [Concomitant]
     Indication: HYPERTENSION
  5. FOSAMAX [Concomitant]
  6. LOTREL [Concomitant]

REACTIONS (1)
  - VULVOVAGINAL DISCOMFORT [None]
